FAERS Safety Report 4714419-2 (Version None)
Quarter: 2005Q3

REPORT INFORMATION
  Report Type: 
  Country: None (occurrence: None)
  Receive Date: 20050712
  Receipt Date: 20050628
  Transmission Date: 20060218
  Serious: Yes (Death)
  Sender: FDA-Public Use
  Company Number: 215579

PATIENT
  Age: 68 Year
  Sex: Male

DRUGS (5)
  1. RITUXAN [Suspect]
     Indication: NON-HODGKIN'S LYMPHOMA
  2. DOXORUBICIN HYDROCHLORIDE [Concomitant]
  3. CYCLOPHOSPHAMIDE [Concomitant]
  4. VINCRISTIN (VINCRITINE SULFATE) [Concomitant]
  5. PREDNISONE [Concomitant]

REACTIONS (2)
  - ANAPLASTIC THYROID CANCER [None]
  - METASTASIS [None]
